FAERS Safety Report 10658103 (Version 1)
Quarter: 2014Q4

REPORT INFORMATION
  Report Type: Spontaneous
  Country: US (occurrence: None)
  Receive Date: 20141205
  Receipt Date: 20141205
  Transmission Date: 20150529
  Serious: Yes (Other)
  Sender: FDA-Public Use
  Company Number: 163-POMAL-14091744

PATIENT
  Age: 70 Year
  Sex: Female

DRUGS (7)
  1. DEXAMETHASONE (DEXAMETHASONE) (UNKNOWN) [Concomitant]
     Active Substance: DEXAMETHASONE
  2. LANSOPRAZOLE (LANSOPRAZOLE) (UNKNOWN) [Concomitant]
  3. TRIAMTERENE/HYDROCHLOROTHIAZIDE (DYAZIDE) (UNKNOWN) [Concomitant]
  4. POMALYST [Suspect]
     Active Substance: POMALIDOMIDE
     Indication: PLASMA CELL MYELOMA
     Route: 048
     Dates: start: 20120905, end: 20140905
  5. TIZANIDINE (TIZANIDINE) (UNKNOWN) [Concomitant]
  6. FAMCICLOVIR (FAMCICLOVIR) (UNKNOWN) [Concomitant]
  7. CITALOPRAM (CITALOPRAM) (UNKNOWN) [Concomitant]

REACTIONS (1)
  - Laboratory test abnormal [None]

NARRATIVE: CASE EVENT DATE: 20140609
